FAERS Safety Report 7510286-2 (Version None)
Quarter: 2011Q2

REPORT INFORMATION
  Report Type: 
  Country: None (occurrence: None)
  Receive Date: 20110527
  Receipt Date: 20110204
  Transmission Date: 20111010
  Serious: Yes (Other)
  Sender: FDA-Public Use
  Company Number: PHHY2011US17790

PATIENT
  Age: 73 Year
  Sex: Female

DRUGS (12)
  1. NEORECORMON [Concomitant]
     Indication: ANAEMIA
     Dosage: UNK
     Route: 058
     Dates: start: 20091201, end: 20100301
  2. REVLIMID [Concomitant]
     Indication: MULTIPLE MYELOMA
     Dosage: 10 MG, D 1-21 OUT OF 28
  3. DEXAMETHASONE [Concomitant]
     Indication: MULTIPLE MYELOMA
     Dosage: UNK
     Dates: start: 20080201
  4. RADIOTHERAPY [Concomitant]
     Dosage: UNK
     Dates: start: 20071101, end: 20071201
  5. MELPHALAN HYDROCHLORIDE [Concomitant]
     Dosage: UNK
     Dates: start: 20041001, end: 20050201
  6. ZOMETA [Suspect]
     Dosage: UNK
     Route: 042
     Dates: start: 20041101, end: 20080701
  7. ZOMETA [Suspect]
     Dosage: UNK
  8. MELPHALAN HYDROCHLORIDE [Concomitant]
     Dosage: UNK
     Dates: start: 20060101
  9. NEORECORMON [Concomitant]
     Dosage: UNK
     Dates: start: 20101101
  10. LEXIANAN [Concomitant]
  11. PREDNISONE [Concomitant]
     Dosage: UNK
     Dates: start: 20041001, end: 20050201
  12. PREDNISONE [Concomitant]
     Dosage: UNK
     Dates: start: 20060101

REACTIONS (8)
  - THORACIC VERTEBRAL FRACTURE [None]
  - SPINAL OSTEOARTHRITIS [None]
  - OSTEONECROSIS OF JAW [None]
  - BONE SWELLING [None]
  - AORTIC VALVE INCOMPETENCE [None]
  - OSTEOARTHRITIS [None]
  - ANAEMIA [None]
  - PULMONARY EMBOLISM [None]
